FAERS Safety Report 11872744 (Version 1)
Quarter: 2015Q4

REPORT INFORMATION
  Report Type: Spontaneous
  Country: None (occurrence: US)
  Receive Date: 20151228
  Receipt Date: 20151228
  Transmission Date: 20160305
  Serious: No
  Sender: FDA-Public Use
  Company Number: US-MATRIXX INITIATIVES, INC.-1045938

PATIENT
  Age: 67 Year
  Sex: Female
  Weight: 89.09 kg

DRUGS (1)
  1. ZICAM ALLERGY RELIEF [Suspect]
     Active Substance: GALPHIMIA GLAUCA FLOWERING TOP\HISTAMINE DIHYDROCHLORIDE\LUFFA OPERCULATA FRUIT\SULFUR
     Route: 045

REACTIONS (1)
  - Anosmia [Recovering/Resolving]
